FAERS Safety Report 9410523 (Version 1)
Quarter: 2013Q3

REPORT INFORMATION
  Report Type: Spontaneous
  Country: DK (occurrence: DK)
  Receive Date: 20130719
  Receipt Date: 20130719
  Transmission Date: 20140515
  Serious: Yes (Life-Threatening, Hospitalization)
  Sender: FDA-Public Use
  Company Number: DK-ABBOTT-13P-044-1122561-00

PATIENT
  Age: 38 Year
  Sex: Male
  Weight: 94 kg

DRUGS (4)
  1. TESTOGEL [Suspect]
     Indication: BLOOD TESTOSTERONE DECREASED
     Route: 062
     Dates: start: 20090615
  2. TESTOGEL [Suspect]
     Indication: OSTEOPOROSIS PROPHYLAXIS
     Dosage: REDUCED DOSE TO HALF
     Dates: start: 20100126, end: 20100408
  3. TESTOGEL [Suspect]
     Indication: KLINEFELTER^S SYNDROME
  4. TESTOGEL [Suspect]
     Indication: OSTEOPENIA

REACTIONS (4)
  - Suicide attempt [Recovered/Resolved]
  - Depression [Recovering/Resolving]
  - Anger [Recovering/Resolving]
  - Anxiety [Recovering/Resolving]
